FAERS Safety Report 16136151 (Version 1)
Quarter: 2019Q1

REPORT INFORMATION
  Report Type: Spontaneous
  Country: IT (occurrence: IT)
  Receive Date: 20190329
  Receipt Date: 20190329
  Transmission Date: 20190418
  Serious: Yes (Other)
  Sender: FDA-Public Use
  Company Number: IT-SHIRE-IT201909835

PATIENT

DRUGS (2)
  1. COAGULATION FACTOR VIII(RECOMBINANT) [Suspect]
     Active Substance: ANTIHEMOPHILIC FACTOR, HUMAN RECOMBINANT
     Indication: IMMUNE TOLERANCE INDUCTION
     Dosage: BID 100 IU/KG, EVERY 12H
     Route: 065
  2. COAGULATION FACTOR VIII(RECOMBINANT) [Suspect]
     Active Substance: ANTIHEMOPHILIC FACTOR, HUMAN RECOMBINANT
     Indication: FACTOR VIII DEFICIENCY

REACTIONS (2)
  - Drug ineffective for unapproved indication [Unknown]
  - Factor VIII inhibition [Recovered/Resolved]
